FAERS Safety Report 8377335-3 (Version None)
Quarter: 2012Q2

REPORT INFORMATION
  Report Type: 
  Country: None (occurrence: None)
  Receive Date: 20120521
  Receipt Date: 20120505
  Transmission Date: 20120825
  Serious: Yes (Other)
  Sender: FDA-Public Use
  Company Number: 2012AP001357

PATIENT
  Age: 66 Year
  Sex: Male

DRUGS (4)
  1. MITOXANTRONE [Concomitant]
  2. ETOPOSIDE [Concomitant]
  3. CIPROFLOXACIN [Suspect]
     Indication: ANTIBIOTIC PROPHYLAXIS
     Dosage: 500 MG;PO;BID
     Route: 048
  4. CYTARABINE [Concomitant]

REACTIONS (4)
  - TENDON INJURY [None]
  - ARTHRALGIA [None]
  - TOXICITY TO VARIOUS AGENTS [None]
  - TENDON RUPTURE [None]
